FAERS Safety Report 13719822 (Version 1)
Quarter: 2017Q3

REPORT INFORMATION
  Report Type: Spontaneous
  Country: CH (occurrence: CH)
  Receive Date: 20170705
  Receipt Date: 20170705
  Transmission Date: 20171127
  Serious: Yes (Hospitalization)
  Sender: FDA-Public Use
  Company Number: PHHY2017CH091577

PATIENT
  Age: 70 Year
  Sex: Male

DRUGS (7)
  1. CEFEPIME [Suspect]
     Active Substance: CEFEPIME HYDROCHLORIDE
     Indication: CHOLECYSTITIS
     Dosage: 1 DF, UNK
     Route: 041
     Dates: start: 20170515, end: 20170515
  2. IMUREK [Suspect]
     Active Substance: AZATHIOPRINE
     Indication: MYASTHENIA GRAVIS
     Dosage: 150 MG, UNK
     Route: 048
     Dates: start: 201608, end: 20170514
  3. AMIKIN [Suspect]
     Active Substance: AMIKACIN SULFATE
     Indication: CHOLECYSTITIS
     Dosage: 1 DF, UNK
     Route: 041
     Dates: start: 20170515, end: 20170515
  4. TAVANIC [Suspect]
     Active Substance: LEVOFLOXACIN
     Indication: PRODUCT USED FOR UNKNOWN INDICATION
     Dosage: 1 DF, UNK
     Route: 048
     Dates: start: 201705, end: 2017
  5. CO-AMOXI [Suspect]
     Active Substance: AMOXICILLIN\CLAVULANATE POTASSIUM
     Indication: PRODUCT USED FOR UNKNOWN INDICATION
     Dosage: 1 DF, UNK
     Route: 048
     Dates: start: 201705, end: 2017
  6. CEDUR [Suspect]
     Active Substance: BEZAFIBRATE
     Indication: PRODUCT USED FOR UNKNOWN INDICATION
     Dosage: 400 MG, QD
     Route: 048
     Dates: start: 201608, end: 20170514
  7. ALLOPUR [Suspect]
     Active Substance: ALLOPURINOL
     Indication: HYPERURICAEMIA
     Dosage: 100 MG, QD
     Route: 048
     Dates: start: 20170316, end: 20170514

REACTIONS (5)
  - Pancytopenia [Recovering/Resolving]
  - Inhibitory drug interaction [Recovering/Resolving]
  - Rash generalised [Recovered/Resolved]
  - Rhinovirus infection [Unknown]
  - Rash morbilliform [Unknown]

NARRATIVE: CASE EVENT DATE: 20170329
